FAERS Safety Report 4865135-8 (Version None)
Quarter: 2005Q4

REPORT INFORMATION
  Report Type: 
  Country: None (occurrence: None)
  Receive Date: 20051219
  Receipt Date: 20051207
  Transmission Date: 20060501
  Serious: Yes (Life-Threatening)
  Sender: FDA-Public Use
  Company Number: 2005RR-01307

PATIENT
  Age: 61 Year
  Sex: Female

DRUGS (1)
  1. METFORMIN HYDROCHLORIDE [Suspect]
     Indication: DIABETES MELLITUS
     Dosage: 2G, ORAL
     Route: 048
     Dates: start: 20061001, end: 20061112

REACTIONS (4)
  - CONFUSIONAL STATE [None]
  - HEADACHE [None]
  - LACTIC ACIDOSIS [None]
  - VOMITING [None]
